FAERS Safety Report 11619731 (Version 2)
Quarter: 2015Q4

REPORT INFORMATION
  Report Type: Spontaneous
  Country: BR (occurrence: BR)
  Receive Date: 20151012
  Receipt Date: 20151015
  Transmission Date: 20160304
  Serious: Yes (Hospitalization)
  Sender: FDA-Public Use
  Company Number: BR-SA-2015SA153213

PATIENT
  Sex: Female
  Weight: 2 kg

DRUGS (1)
  1. LANTUS [Suspect]
     Active Substance: INSULIN GLARGINE
     Indication: TYPE 2 DIABETES MELLITUS
     Route: 064
     Dates: start: 20150511, end: 20150722

REACTIONS (2)
  - Foetal exposure timing unspecified [Unknown]
  - Premature baby [Unknown]

NARRATIVE: CASE EVENT DATE: 20150722
